FAERS Safety Report 20777479 (Version 6)
Quarter: 2025Q2

REPORT INFORMATION
  Report Type: Spontaneous
  Country: US (occurrence: US)
  Receive Date: 20220503
  Receipt Date: 20250511
  Transmission Date: 20250717
  Serious: Yes (Hospitalization, Other)
  Sender: SANOFI AVENTIS
  Company Number: US-SA-SAC20220502000804

PATIENT
  Age: 39 Year
  Sex: Female

DRUGS (11)
  1. DUPIXENT [Suspect]
     Active Substance: DUPILUMAB
     Indication: Dermatitis atopic
     Dosage: 300 MG, QOW
     Route: 058
     Dates: start: 202107
  2. UREA [Concomitant]
     Active Substance: UREA
     Dosage: UNK UNK, HS
     Route: 061
  3. FLUOCINONIDE [Concomitant]
     Active Substance: FLUOCINONIDE
     Indication: Pruritus
     Dosage: UNK UNK, BID
  4. CLOBETASOL [Concomitant]
     Active Substance: CLOBETASOL
     Indication: Scar
     Dosage: UNK UNK, BID
     Route: 061
  5. CLOBETASOL [Concomitant]
     Active Substance: CLOBETASOL
     Indication: Pruritus
  6. MUPIROCIN [Concomitant]
     Active Substance: MUPIROCIN
     Route: 061
  7. BUSPIRONE [Concomitant]
     Active Substance: BUSPIRONE HYDROCHLORIDE
     Dosage: UNK UNK, BID
     Route: 048
  8. HYDROCHLOROTHIAZIDE\LISINOPRIL [Concomitant]
     Active Substance: HYDROCHLOROTHIAZIDE\LISINOPRIL
     Route: 048
  9. LORATADINE [Concomitant]
     Active Substance: LORATADINE
     Route: 048
  10. METFORMIN [Concomitant]
     Active Substance: METFORMIN HYDROCHLORIDE
     Dosage: UNK UNK, BID
     Route: 048
  11. SYNTHROID [Concomitant]
     Active Substance: LEVOTHYROXINE SODIUM
     Dosage: UNK UNK, QD
     Route: 048

REACTIONS (4)
  - Pneumonia [Unknown]
  - Upper respiratory tract infection [Unknown]
  - Product dose omission in error [Unknown]
  - Inappropriate schedule of product administration [Unknown]
